FAERS Safety Report 5986376-2 (Version None)
Quarter: 2008Q4

REPORT INFORMATION
  Report Type: 
  Country: None (occurrence: None)
  Receive Date: 20081209
  Receipt Date: 20081127
  Transmission Date: 20090506
  Serious: Yes (Hospitalization)
  Sender: FDA-Public Use
  Company Number: JP-NOVOPROD-281869

PATIENT
  Sex: Male
  Weight: 70 kg

DRUGS (1)
  1. NOVORAPID 30 MIX CHU FLEXPEN [Suspect]
     Indication: TYPE 2 DIABETES MELLITUS
     Dosage: 32 IU, QD
     Route: 058
     Dates: start: 20010620

REACTIONS (3)
  - CARDIAC FAILURE ACUTE [None]
  - NASOPHARYNGITIS [None]
  - PRODUCT QUALITY ISSUE [None]
